FAERS Safety Report 14430768 (Version 1)
Quarter: 2018Q1

REPORT INFORMATION
  Report Type: Spontaneous
  Country: US (occurrence: US)
  Receive Date: 20180124
  Receipt Date: 20180124
  Transmission Date: 20180509
  Serious: Yes (Other)
  Sender: FDA-Public Use
  Company Number: US-ALVOGEN-2018-ALVOGEN-094914

PATIENT
  Age: 35 Year
  Sex: Male

DRUGS (6)
  1. MESALAZINE [Concomitant]
     Active Substance: MESALAMINE
     Indication: INFECTIOUS COLITIS
  2. INFLIXIMAB [Concomitant]
     Active Substance: INFLIXIMAB
     Indication: INFECTIOUS COLITIS
  3. AZATHIOPRINE. [Concomitant]
     Active Substance: AZATHIOPRINE
     Indication: INFECTIOUS COLITIS
  4. OXYCODONE [Suspect]
     Active Substance: OXYCODONE
     Indication: ABDOMINAL PAIN
  5. TRAMADOL. [Suspect]
     Active Substance: TRAMADOL
     Indication: ABDOMINAL PAIN
  6. PREDNISOLONE. [Concomitant]
     Active Substance: PREDNISOLONE
     Indication: INFECTIOUS COLITIS

REACTIONS (3)
  - Narcotic bowel syndrome [Unknown]
  - Constipation [Unknown]
  - Irritable bowel syndrome [Unknown]
